FAERS Safety Report 22280384 (Version 1)
Quarter: 2023Q2

REPORT INFORMATION
  Report Type: Spontaneous
  Country: CN (occurrence: CN)
  Receive Date: 20230503
  Receipt Date: 20230503
  Transmission Date: 20230721
  Serious: Yes (Hospitalization, Other)
  Sender: FDA-Public Use
  Company Number: CN-PFIZER INC-PV202300077151

PATIENT
  Age: 12 Month
  Sex: Male
  Weight: 9.5 kg

DRUGS (4)
  1. CYTARABINE [Suspect]
     Active Substance: CYTARABINE
     Indication: Chemotherapy
     Dosage: 0.65 G, 2X/DAY
     Route: 042
     Dates: start: 20230407, end: 20230408
  2. ETOPOSIDE [Suspect]
     Active Substance: ETOPOSIDE
     Indication: Chemotherapy
     Dosage: 32.4 MG, 2X/DAY
     Route: 042
     Dates: start: 20230409, end: 20230411
  3. PEGASPARGASE [Suspect]
     Active Substance: PEGASPARGASE
     Indication: Chemotherapy
     Dosage: 8112 IU, 1X/DAY
     Route: 030
     Dates: start: 20230407, end: 20230407
  4. DEXAMETHASONE ACETATE [Suspect]
     Active Substance: DEXAMETHASONE ACETATE
     Indication: Chemotherapy
     Dosage: 2.16 MG, 3X/DAY
     Route: 048
     Dates: start: 20230407, end: 20230411

REACTIONS (4)
  - Drug-induced liver injury [Recovering/Resolving]
  - Myelosuppression [Recovering/Resolving]
  - Hypokalaemia [Recovering/Resolving]
  - Hypoproteinaemia [Recovering/Resolving]

NARRATIVE: CASE EVENT DATE: 20230413
